FAERS Safety Report 8819818 (Version 2)
Quarter: 2012Q4

REPORT INFORMATION
  Report Type: 
  Country: US (occurrence: US)
  Receive Date: 20121001
  Receipt Date: 20121018
  Transmission Date: 20130627
  Serious: Yes (Disabling, Other)
  Sender: FDA-Public Use
  Company Number: US-PFIZER INC-2012239514

PATIENT
  Age: 61 Year
  Sex: Female

DRUGS (3)
  1. LYRICA [Suspect]
     Indication: CONVULSION
     Dosage: 300 mg, 2x/day
     Route: 048
  2. LAMICTAL [Suspect]
     Indication: CONVULSION
     Dosage: UNK
  3. KEPPRA [Suspect]
     Indication: CONVULSION
     Dosage: UNK

REACTIONS (4)
  - Convulsion [Unknown]
  - Cognitive disorder [Unknown]
  - Impaired work ability [Unknown]
  - Memory impairment [Unknown]
